FAERS Safety Report 7987866-3 (Version None)
Quarter: 2011Q4

REPORT INFORMATION
  Report Type: 
  Country: None (occurrence: None)
  Receive Date: 20111216
  Receipt Date: 20110512
  Transmission Date: 20120403
  Serious: No
  Sender: FDA-Public Use
  Company Number: US-BRISTOL-MYERS SQUIBB COMPANY-15740152

PATIENT
  Age: 44 Year
  Sex: Female
  Weight: 54 kg

DRUGS (2)
  1. SEROQUEL [Concomitant]
     Dosage: (TAPERING OFF).
  2. ABILIFY [Suspect]
     Dates: start: 20110508

REACTIONS (1)
  - NAUSEA [None]
